FAERS Safety Report 11023431 (Version 8)
Quarter: 2017Q1

REPORT INFORMATION
  Report Type: Spontaneous
  Country: US (occurrence: US)
  Receive Date: 20150413
  Receipt Date: 20170109
  Transmission Date: 20170428
  Serious: No
  Sender: FDA-Public Use
  Company Number: US-PFIZER INC-2015105329

PATIENT
  Age: 66 Year
  Sex: Male
  Weight: 96 kg

DRUGS (4)
  1. NEXIUM [Concomitant]
     Active Substance: ESOMEPRAZOLE MAGNESIUM
     Indication: GASTROOESOPHAGEAL REFLUX DISEASE
     Dosage: 40 MG, UNK
     Dates: start: 1996
  2. CELEBREX [Suspect]
     Active Substance: CELECOXIB
     Indication: NEOPLASM MALIGNANT
     Dosage: 200 MG, DAILY
     Route: 048
     Dates: start: 201211
  3. CELEBREX [Suspect]
     Active Substance: CELECOXIB
     Indication: CANCER PAIN
     Dosage: 200 MG, UNK
     Route: 048
     Dates: start: 2013
  4. CELEBREX [Suspect]
     Active Substance: CELECOXIB
     Indication: ANGIOSARCOMA
     Dosage: 200 MG, DAILY
     Route: 048

REACTIONS (12)
  - Pyrexia [Recovered/Resolved]
  - Pre-existing condition improved [Recovered/Resolved]
  - Drug dose omission [Recovered/Resolved]
  - Decreased appetite [Recovered/Resolved]
  - Chest pain [Unknown]
  - Off label use [Recovered/Resolved]
  - Fatigue [Recovered/Resolved]
  - Asthenia [Recovered/Resolved]
  - Depression [Recovered/Resolved]
  - Influenza like illness [Recovered/Resolved]
  - Night sweats [Unknown]
  - Therapeutic response unexpected [Recovered/Resolved]

NARRATIVE: CASE EVENT DATE: 201211
